FAERS Safety Report 7095348-9 (Version None)
Quarter: 2010Q4

REPORT INFORMATION
  Report Type: 
  Country: None (occurrence: None)
  Receive Date: 20101111
  Receipt Date: 20101104
  Transmission Date: 20110411
  Serious: Yes (Death, Other)
  Sender: FDA-Public Use
  Company Number: JP-CELGENEUS-087-21880-10101245

PATIENT
  Age: 76 Year
  Sex: Female

DRUGS (30)
  1. REVLIMID [Suspect]
     Indication: MULTIPLE MYELOMA
     Route: 048
     Dates: start: 20100930, end: 20101006
  2. REVLIMID [Suspect]
     Route: 048
     Dates: start: 20101007, end: 20101009
  3. DEXAMETHASONE [Concomitant]
     Indication: MULTIPLE MYELOMA
     Route: 048
     Dates: start: 20100930, end: 20100930
  4. ZOVIRAX [Concomitant]
     Indication: PROPHYLAXIS
     Route: 048
     Dates: start: 20070101, end: 20101010
  5. OMEPRAL [Concomitant]
     Indication: MULTIPLE MYELOMA
     Route: 048
     Dates: start: 20070101, end: 20101010
  6. ALDACTONE [Concomitant]
     Indication: MITRAL VALVE PROLAPSE
     Route: 048
     Dates: start: 20091001, end: 20101010
  7. ITRIZOLE [Concomitant]
     Indication: PROPHYLAXIS
     Route: 048
     Dates: start: 20090101, end: 20101010
  8. BAKTAR [Concomitant]
     Indication: PROPHYLAXIS
     Route: 048
     Dates: start: 20070101, end: 20101010
  9. BONALON [Concomitant]
     Route: 048
     Dates: start: 20070101, end: 20101010
  10. DEPAS [Concomitant]
     Indication: MULTIPLE MYELOMA
     Route: 048
     Dates: start: 20090101, end: 20101010
  11. CORTRIL [Concomitant]
     Indication: MULTIPLE MYELOMA
     Route: 048
     Dates: start: 20091001, end: 20101010
  12. CALONAL [Concomitant]
     Indication: MULTIPLE MYELOMA
     Route: 048
     Dates: start: 20100812, end: 20101010
  13. LASIX [Concomitant]
     Indication: MITRAL VALVE PROLAPSE
     Route: 048
     Dates: start: 20090101, end: 20101010
  14. CLARITHROMYCIN [Concomitant]
     Indication: PROPHYLAXIS
     Route: 048
     Dates: start: 20100914, end: 20101010
  15. 8-HOUR BAYER [Concomitant]
     Indication: PROPHYLAXIS
     Route: 048
     Dates: start: 20100930, end: 20101010
  16. MAGLAX [Concomitant]
     Indication: MULTIPLE MYELOMA
     Route: 048
     Dates: start: 20100930, end: 20101010
  17. NEUTROGIN [Concomitant]
     Indication: NEUTROPHIL COUNT DECREASED
     Route: 058
     Dates: start: 20101010, end: 20101011
  18. MAXIPIME [Concomitant]
     Indication: PNEUMONIA
     Route: 041
     Dates: start: 20101010, end: 20101010
  19. MAXIPIME [Concomitant]
     Indication: SEPSIS
  20. MEROPEN [Concomitant]
     Indication: PNEUMONIA
     Route: 051
     Dates: start: 20101011, end: 20101011
  21. MEROPEN [Concomitant]
     Indication: SEPSIS
  22. CIPROFLOXACIN [Concomitant]
     Indication: PNEUMONIA
     Route: 041
     Dates: start: 20101011, end: 20101011
  23. CIPROFLOXACIN [Concomitant]
     Indication: SEPSIS
  24. AMBISOME [Concomitant]
     Indication: PNEUMONIA
     Route: 041
     Dates: start: 20101011, end: 20101011
  25. AMBISOME [Concomitant]
     Indication: SEPSIS
  26. DOPAMINE [Concomitant]
     Indication: PNEUMONIA
     Route: 041
     Dates: start: 20101011, end: 20101011
  27. DOPAMINE [Concomitant]
     Indication: SEPSIS
  28. VENOGLOBULIN [Concomitant]
     Indication: PNEUMONIA
     Route: 041
     Dates: start: 20101011, end: 20101011
  29. VENOGLOBULIN [Concomitant]
     Indication: SEPSIS
  30. PLATELETS TRANSFUSION [Concomitant]
     Indication: PLATELET COUNT DECREASED
     Route: 065

REACTIONS (5)
  - ANAEMIA [None]
  - NEUTROPHIL COUNT DECREASED [None]
  - PLATELET COUNT DECREASED [None]
  - PNEUMONIA [None]
  - SEPSIS [None]
